FAERS Safety Report 19033826 (Version 1)
Quarter: 2021Q1

REPORT INFORMATION
  Report Type: Spontaneous
  Country: CN (occurrence: CN)
  Receive Date: 20210320
  Receipt Date: 20210320
  Transmission Date: 20210420
  Serious: Yes (Hospitalization, Other)
  Sender: FDA-Public Use
  Company Number: CN-B.I. PHARMACEUTICALS,INC./RIDGEFIELD-2021-BI-090080

PATIENT
  Age: 35 Year
  Sex: Male

DRUGS (4)
  1. INSULIN [Concomitant]
     Active Substance: INSULIN NOS
     Indication: PRODUCT USED FOR UNKNOWN INDICATION
  2. METFORMIN [Concomitant]
     Active Substance: METFORMIN HYDROCHLORIDE
     Indication: PRODUCT USED FOR UNKNOWN INDICATION
  3. JARDIANCE [Suspect]
     Active Substance: EMPAGLIFLOZIN
     Indication: PRODUCT USED FOR UNKNOWN INDICATION
     Route: 048
     Dates: start: 202006
  4. GLUCOBAY [Concomitant]
     Active Substance: ACARBOSE
     Indication: PRODUCT USED FOR UNKNOWN INDICATION

REACTIONS (4)
  - Ketoacidosis [Recovered/Resolved]
  - Coma [Recovered/Resolved]
  - Ketoacidosis [Unknown]
  - Product use issue [Unknown]

NARRATIVE: CASE EVENT DATE: 202101
